FAERS Safety Report 16161659 (Version 1)
Quarter: 2019Q2

REPORT INFORMATION
  Report Type: Spontaneous
  Country: FR (occurrence: FR)
  Receive Date: 20190405
  Receipt Date: 20190405
  Transmission Date: 20190711
  Serious: Yes (Hospitalization, Other)
  Sender: FDA-Public Use
  Company Number: FR-AUROBINDO-AUR-APL-2019-018023

PATIENT

DRUGS (6)
  1. CEFIXIME. [Suspect]
     Active Substance: CEFIXIME
     Indication: OCULAR ICTERUS
  2. COTRIMOXAZOLE [Suspect]
     Active Substance: SULFAMETHOXAZOLE\TRIMETHOPRIM
     Indication: OCULAR ICTERUS
  3. SULFAMETHOXAZOLE AND TRIMETHOPRIM [Suspect]
     Active Substance: SULFAMETHOXAZOLE\TRIMETHOPRIM
     Indication: DIARRHOEA
  4. CEFIXIME. [Suspect]
     Active Substance: CEFIXIME
     Indication: DIARRHOEA
     Dosage: UNK, (DOSE AS USED: UNK)
     Route: 065
     Dates: start: 20051201
  5. SULFAMETHOXAZOLE AND TRIMETHOPRIM [Suspect]
     Active Substance: SULFAMETHOXAZOLE\TRIMETHOPRIM
     Indication: OCULAR ICTERUS
     Dosage: UNK
     Route: 065
     Dates: start: 20051201
  6. COTRIMOXAZOLE [Suspect]
     Active Substance: SULFAMETHOXAZOLE\TRIMETHOPRIM
     Indication: DIARRHOEA
     Dosage: UNK
     Route: 065
     Dates: start: 200512

REACTIONS (10)
  - Leukocyturia [Recovered/Resolved]
  - Drug reaction with eosinophilia and systemic symptoms [Recovered/Resolved]
  - Blood creatinine increased [Recovered/Resolved]
  - Proteinuria [Recovered/Resolved]
  - Monocytosis [Recovered/Resolved]
  - Polyuria [Recovered/Resolved]
  - Acute kidney injury [Recovered/Resolved]
  - Eosinophilia [Recovered/Resolved]
  - Pyrexia [Recovered/Resolved]
  - Tubulointerstitial nephritis [Recovered/Resolved]
